FAERS Safety Report 7917151 (Version 3)
Quarter: 2013Q1

REPORT INFORMATION
  Report Type: Spontaneous
  Country: ES (occurrence: None)
  Receive Date: 20110406
  Receipt Date: 20130212
  Transmission Date: 20140127
  Serious: Yes (Other)
  Sender: FDA-Public Use
  Company Number: NGX_00377_2011

PATIENT
  Age: 25 Year
  Sex: Female
  Weight: 101 kg

DRUGS (3)
  1. QUTENZA [Suspect]
     Dosage: ([PATCH] TOPICAL[
     Route: 061
     Dates: start: 20110309
  2. LYRICA [Concomitant]
  3. DOPLAR [Concomitant]

REACTIONS (3)
  - BURNS SECOND DEGREE [None]
  - APPLICATION SITE PAPULES [None]
  - PAIN [None]
